FAERS Safety Report 15790847 (Version 1)
Quarter: 2018Q4

REPORT INFORMATION
  Report Type: Spontaneous
  Country: US (occurrence: US)
  Receive Date: 20181213
  Receipt Date: 20181213
  Transmission Date: 20190205
  Serious: No
  Sender: FDA-Public Use
  Company Number: None

PATIENT
  Age: 65 Year
  Sex: Female

DRUGS (2)
  1. CAPECITABINE 500MG TAB [Suspect]
     Active Substance: CAPECITABINE
     Indication: COLON CANCER
     Dosage: BID D1-14 OF 21
     Route: 048
     Dates: end: 20181210
  2. CAPECITABINE 500MG TAB [Suspect]
     Active Substance: CAPECITABINE
     Indication: UTERINE CANCER
     Dosage: BID D1-14 OF 21
     Route: 048
     Dates: end: 20181210

REACTIONS (6)
  - Neuropathy peripheral [None]
  - Visual impairment [None]
  - Palmar-plantar erythrodysaesthesia syndrome [None]
  - Asthenia [None]
  - Dyspnoea [None]
  - Balance disorder [None]

NARRATIVE: CASE EVENT DATE: 20181207
